FAERS Safety Report 7553179-7 (Version None)
Quarter: 2011Q2

REPORT INFORMATION
  Report Type: 
  Country: None (occurrence: None)
  Receive Date: 20110617
  Receipt Date: 20110607
  Transmission Date: 20111010
  Serious: Yes (Other)
  Sender: FDA-Public Use
  Company Number: US-BIOGENIDEC-2011BI011413

PATIENT
  Age: 67 Year
  Sex: Female

DRUGS (1)
  1. TYSABRI [Suspect]
     Indication: MULTIPLE SCLEROSIS
     Route: 042
     Dates: start: 20080314, end: 20101112

REACTIONS (8)
  - INFLUENZA [None]
  - DRY SKIN [None]
  - NASOPHARYNGITIS [None]
  - DECREASED IMMUNE RESPONSIVENESS [None]
  - CATARACT [None]
  - SKIN CANCER [None]
  - SKIN WRINKLING [None]
  - SKIN HAEMORRHAGE [None]
